FAERS Safety Report 20152948 (Version 1)
Quarter: 2021Q4

REPORT INFORMATION
  Report Type: Spontaneous
  Country: US (occurrence: None)
  Receive Date: 20211206
  Receipt Date: 20211206
  Transmission Date: 20220303
  Serious: Yes (Hospitalization)
  Sender: FDA-Public Use
  Company Number: None

PATIENT
  Age: 17 Year
  Sex: Male

DRUGS (11)
  1. ILARIS [Suspect]
     Active Substance: CANAKINUMAB
     Indication: Pericarditis
     Dosage: OTHER FREQUENCY : EVERY 5 WEEKS;?
     Route: 058
     Dates: start: 20191219
  2. ALLERGY RELF [Concomitant]
  3. BACLOFEN [Concomitant]
     Active Substance: BACLOFEN
  4. CIPRO/DEXA [Concomitant]
  5. DEXMETHYLPH [Concomitant]
  6. ENALAPRIL [Concomitant]
     Active Substance: ENALAPRIL
  7. FLUTICASONE [Concomitant]
     Active Substance: FLUTICASONE
  8. KINERET [Concomitant]
     Active Substance: ANAKINRA
  9. RISPERIDONE [Concomitant]
     Active Substance: RISPERIDONE
  10. SODIUM FLUOR GEL [Concomitant]
  11. TOLTERODINE [Concomitant]
     Active Substance: TOLTERODINE

REACTIONS (1)
  - Therapy interrupted [None]

NARRATIVE: CASE EVENT DATE: 20211124
